FAERS Safety Report 4933062-3 (Version None)
Quarter: 2006Q1

REPORT INFORMATION
  Report Type: 
  Country: None (occurrence: None)
  Receive Date: 20060306
  Receipt Date: 20060222
  Transmission Date: 20060701
  Serious: Yes (Other)
  Sender: FDA-Public Use
  Company Number: PHBS2006IT03038

PATIENT
  Age: 71 Year
  Sex: Male

DRUGS (11)
  1. ZOMETA [Suspect]
     Indication: METASTASES TO BONE
     Dosage: 4 MG, UNK
     Route: 042
     Dates: start: 20031101, end: 20051001
  2. TICLOPIDINE HCL [Concomitant]
  3. LERCANIDIPINE [Concomitant]
  4. DIFLUCAN [Concomitant]
     Dosage: 100 MG, UNK
     Route: 048
  5. ZOFRAN [Concomitant]
     Dosage: 8 MG, UNK
     Route: 048
  6. DELTACORTENE [Concomitant]
     Dosage: 5 MG, UNK
     Route: 048
  7. TAXOTERE [Concomitant]
     Dosage: 20 MG, UNK
     Route: 042
  8. CONTRAMAL [Concomitant]
     Dosage: 100 MG/10 ML
     Route: 048
  9. ENANTONE [Concomitant]
     Dosage: 3.75 MG, UNK
     Route: 030
  10. CACIT VITAMINE D3 [Concomitant]
  11. ENAPREN [Concomitant]
     Dosage: 20 MG, UNK
     Route: 048

REACTIONS (1)
  - OSTEONECROSIS [None]
